FAERS Safety Report 24324702 (Version 2)
Quarter: 2025Q4

REPORT INFORMATION
  Report Type: Report from Study
  Country: US (occurrence: US)
  Receive Date: 20240916
  Receipt Date: 20251004
  Transmission Date: 20260117
  Serious: No
  Sender: SUNOVION
  Company Number: US-SUMITOMO PHARMA SWITZERLAND GMBH-2024SPA001728

PATIENT
  Age: 52 Year
  Sex: Male

DRUGS (1)
  1. ORGOVYX [Suspect]
     Active Substance: RELUGOLIX
     Indication: Prostate cancer
     Dosage: 120 MG, QD
     Route: 048
     Dates: start: 20240629

REACTIONS (6)
  - Surgery [Unknown]
  - Muscle atrophy [Unknown]
  - Alopecia [Unknown]
  - Asthenia [Unknown]
  - Loss of libido [Unknown]
  - Incorrect dose administered [Recovered/Resolved]
